FAERS Safety Report 4356397-4 (Version None)
Quarter: 2004Q2

REPORT INFORMATION
  Report Type: 
  Country: None (occurrence: None)
  Receive Date: 20040506
  Receipt Date: 20040427
  Transmission Date: 20050107
  Serious: No
  Sender: FDA-Public Use
  Company Number: 04P-163-0258969-00

PATIENT
  Age: 32 Year
  Sex: Female

DRUGS (3)
  1. KALETRA [Suspect]
     Indication: HIV INFECTION
     Dosage: 6 CAPSULE, 1 IN 1 D, ORAL
     Route: 048
     Dates: start: 20021021
  2. TENOFOVIR [Concomitant]
  3. LAMIVUDINE [Concomitant]

REACTIONS (4)
  - ABORTION INDUCED [None]
  - BLIGHTED OVUM [None]
  - COMPLICATIONS OF MATERNAL EXPOSURE TO THERAPEUTIC DRUGS [None]
  - MATERNAL DRUGS AFFECTING FOETUS [None]
